FAERS Safety Report 10032732 (Version 2)
Quarter: 2014Q2

REPORT INFORMATION
  Report Type: Report from Study
  Country: RU (occurrence: RU)
  Receive Date: 20140324
  Receipt Date: 20140411
  Transmission Date: 20141212
  Serious: Yes (Life-Threatening)
  Sender: FDA-Public Use
  Company Number: RU-TEVA-470480USA

PATIENT
  Age: 54 Year
  Sex: Male
  Weight: 81 kg

DRUGS (2)
  1. RIBOMUSTIN [Suspect]
     Indication: CHRONIC LYMPHOCYTIC LEUKAEMIA
     Dosage: DOSE: 140
     Route: 042
     Dates: start: 20140114
  2. RITUXIMAB [Concomitant]
     Indication: CHRONIC LYMPHOCYTIC LEUKAEMIA
     Dosage: DOSE: 700
     Route: 042
     Dates: start: 20140114

REACTIONS (1)
  - Intestinal haemorrhage [Recovered/Resolved]
